FAERS Safety Report 20687348 (Version 2)
Quarter: 2022Q2

REPORT INFORMATION
  Report Type: Spontaneous
  Country: HR (occurrence: HR)
  Receive Date: 20220408
  Receipt Date: 20220422
  Transmission Date: 20220721
  Serious: Yes (Other)
  Sender: FDA-Public Use
  Company Number: HR-ALVOGEN-2022-ALVOGEN-119486

PATIENT
  Age: 69 Year
  Sex: Male

DRUGS (5)
  1. ATENOLOL [Suspect]
     Active Substance: ATENOLOL
     Indication: Product used for unknown indication
     Route: 065
  2. ATORVASTATIN CALCIUM [Suspect]
     Active Substance: ATORVASTATIN CALCIUM
     Indication: Product used for unknown indication
     Dosage: 10.0MG UNKNOWN
     Route: 065
  3. AMLODIPINE MESYLATE [Suspect]
     Active Substance: AMLODIPINE MESYLATE
     Indication: Product used for unknown indication
     Dosage: 5.0MG UNKNOWN
     Route: 065
  4. ALLOPURINOL [Suspect]
     Active Substance: ALLOPURINOL
     Indication: Product used for unknown indication
     Dosage: 100.0MG UNKNOWN
     Route: 065
  5. AMLODIPINE\RAMIPRIL [Concomitant]
     Active Substance: AMLODIPINE\RAMIPRIL
     Indication: Blood pressure abnormal
     Dosage: 1 DOSAGE FORM, 10/5/25
     Route: 065

REACTIONS (7)
  - Peripheral swelling [Unknown]
  - Heart rate decreased [Unknown]
  - Somnolence [Unknown]
  - Asthenia [Unknown]
  - Hypotension [Unknown]
  - Blood pressure increased [Unknown]
  - Joint swelling [Unknown]
